FAERS Safety Report 4987576-0 (Version None)
Quarter: 2006Q2

REPORT INFORMATION
  Report Type: 
  Country: None (occurrence: None)
  Receive Date: 20060501
  Receipt Date: 20060420
  Transmission Date: 20061013
  Serious: Yes (Hospitalization)
  Sender: FDA-Public Use
  Company Number: BR-JNJFOC-20060404531

PATIENT
  Sex: Female

DRUGS (23)
  1. REMICADE [Suspect]
     Indication: RHEUMATOID ARTHRITIS
     Route: 042
  2. METHOTREXATE [Concomitant]
     Indication: RHEUMATOID ARTHRITIS
     Route: 048
  3. PREDNISONE TAB [Concomitant]
  4. FOLIC ACID [Concomitant]
  5. VITAMIN D3 [Concomitant]
  6. ALENDRONATE SODIUM [Concomitant]
  7. AAS [Concomitant]
  8. CAPTOPRIL [Concomitant]
  9. CARBAMAZEPINE [Concomitant]
  10. NIMODIPINE [Concomitant]
  11. FLUOXETINE [Concomitant]
  12. CALCIUM CARBONATE [Concomitant]
  13. NAPROXEN [Concomitant]
  14. CLORANA [Concomitant]
  15. RANITIDINE [Concomitant]
  16. MULTI-VITAMIN [Concomitant]
  17. MULTI-VITAMIN [Concomitant]
  18. MULTI-VITAMIN [Concomitant]
  19. MULTI-VITAMIN [Concomitant]
  20. MULTI-VITAMIN [Concomitant]
  21. MULTI-VITAMIN [Concomitant]
  22. MULTI-VITAMIN [Concomitant]
  23. MULTI-VITAMIN [Concomitant]

REACTIONS (2)
  - ANGINA PECTORIS [None]
  - ENCEPHALITIS HERPES [None]
